FAERS Safety Report 9166649 (Version 1)
Quarter: 2013Q1

REPORT INFORMATION
  Report Type: Spontaneous
  Country: US (occurrence: US)
  Receive Date: 20130315
  Receipt Date: 20130315
  Transmission Date: 20140127
  Serious: No
  Sender: FDA-Public Use
  Company Number: US-009507513-1211USA010896

PATIENT
  Sex: Female

DRUGS (2)
  1. MIRALAX [Suspect]
     Indication: PRODUCT USED FOR UNKNOWN INDICATION
     Dosage: UNK, UNKNOWN
     Route: 048
     Dates: start: 2010
  2. MIRALAX [Suspect]
     Dosage: UNK, UNKNOWN
     Route: 048
     Dates: start: 20120120

REACTIONS (3)
  - Diverticulitis [Unknown]
  - Dysgeusia [Unknown]
  - Drug ineffective [Unknown]
